FAERS Safety Report 24040372 (Version 1)
Quarter: 2024Q3

REPORT INFORMATION
  Report Type: Spontaneous
  Country: US (occurrence: US)
  Receive Date: 20240702
  Receipt Date: 20240702
  Transmission Date: 20241017
  Serious: No
  Sender: NOVARTIS
  Company Number: US-002147023-NVSC2024US132293

PATIENT
  Age: 26 Year
  Sex: Male
  Weight: 140.59 kg

DRUGS (1)
  1. VALSARTAN [Suspect]
     Active Substance: VALSARTAN
     Indication: Hypertension
     Dosage: UNK
     Route: 065

REACTIONS (5)
  - Eye disorder [Unknown]
  - Eye pain [Unknown]
  - Depersonalisation/derealisation disorder [Unknown]
  - Brain fog [Unknown]
  - Condition aggravated [Unknown]
